FAERS Safety Report 20925348 (Version 1)
Quarter: 2022Q2

REPORT INFORMATION
  Report Type: Spontaneous
  Country: US (occurrence: None)
  Receive Date: 20220607
  Receipt Date: 20220607
  Transmission Date: 20220721
  Serious: Yes (Other)
  Sender: FDA-Public Use
  Company Number: None

PATIENT
  Age: 66 Year
  Sex: Male
  Weight: 93 kg

DRUGS (2)
  1. RAMIPRIL [Suspect]
     Active Substance: RAMIPRIL
     Indication: Hypertension
     Dosage: 2 UNITS AM PO
     Route: 048
     Dates: start: 20220216, end: 20220321
  2. RAMIPRIL [Suspect]
     Active Substance: RAMIPRIL
     Dosage: 1 UNITS AM PO
     Route: 048
     Dates: start: 20220216, end: 20220321

REACTIONS (4)
  - Angioedema [None]
  - Hypersensitivity [None]
  - Swollen tongue [None]
  - Dysphagia [None]

NARRATIVE: CASE EVENT DATE: 20220318
